FAERS Safety Report 6555526-1 (Version None)
Quarter: 2010Q1

REPORT INFORMATION
  Report Type: 
  Country: None (occurrence: None)
  Receive Date: 20100125
  Receipt Date: 20091210
  Transmission Date: 20100710
  Serious: Yes (Hospitalization)
  Sender: FDA-Public Use
  Company Number: DSJ-2009-10908

PATIENT
  Age: 44 Year
  Sex: Female
  Weight: 60 kg

DRUGS (10)
  1. OLMESARTAN MEDOXOMIL [Suspect]
     Indication: HYPERTENSION
     Dosage: 20 MG (20MG, 1 IN 1D), PER ORAL
     Route: 048
     Dates: start: 20090723, end: 20090727
  2. OLMESARTAN MEDOXOMIL [Suspect]
     Indication: HYPERTENSION
     Dosage: 20 MG (20MG, 1 IN 1D), PER ORAL
     Route: 048
     Dates: start: 20090827, end: 20090928
  3. SAIKO-KA-RYUKOTSU-BOREI-TO (GRANULES) [Suspect]
     Indication: MENOPAUSAL SYMPTOMS
     Dosage: 7.5 GM (2.5 GM, 3 IN 1 D), PER ORAL 7.5 GM (2.5 GM, 3 IN 1 D), PER ORAL
     Route: 048
     Dates: start: 20090326, end: 20090727
  4. SAIKO-KA-RYUKOTSU-BOREI-TO (GRANULES) [Suspect]
     Indication: MENOPAUSAL SYMPTOMS
     Dosage: 7.5 GM (2.5 GM, 3 IN 1 D), PER ORAL 7.5 GM (2.5 GM, 3 IN 1 D), PER ORAL
     Route: 048
     Dates: start: 20090831, end: 20090928
  5. MYONAL (EPERISONE HYDROCHLORIDE) (TABLET)(EPERISONE HYDROCHLORIDE) [Concomitant]
  6. PRAVATIN (PRAVASTATIN SODIUM) (TABLET)(PRAVASTATIN SODIUM) [Concomitant]
  7. EPADEL S (ETHYL ICOSAPENTATE) (CAPSULES) ETHYLICOSAPENTATE) [Concomitant]
  8. PAXIL (PAROXETINE HYDROCHLORIDE) (TABLET)(PAROXETINE HYDROCHLORIDE) [Concomitant]
  9. LORFENAMIN (LOXOPROFEN SODIUM)(TABLET)(LOXOPROFEN SODIUM) [Concomitant]
  10. FLUITRAN (TRICHLORMETHIAZIDE) (TABLET) (TRICHLORMETHIAZIDE) [Concomitant]

REACTIONS (3)
  - CYTOMEGALOVIRUS TEST POSITIVE [None]
  - EPSTEIN-BARR VIRUS ANTIBODY POSITIVE [None]
  - HEPATITIS ACUTE [None]
